FAERS Safety Report 10210377 (Version 1)
Quarter: 2014Q2

REPORT INFORMATION
  Report Type: Spontaneous
  Country: TR (occurrence: None)
  Receive Date: 20140528
  Receipt Date: 20140528
  Transmission Date: 20141212
  Serious: Yes (Other)
  Sender: FDA-Public Use
  Company Number: ADR-2014-00887

PATIENT
  Age: 69 Year
  Sex: Male

DRUGS (3)
  1. TIZANIDINE [Suspect]
  2. BACLOFEN  INTRATHECAL [Suspect]
     Indication: MUSCLE SPASTICITY
  3. BACLOFEN [Suspect]
     Indication: MUSCLE SPASTICITY

REACTIONS (4)
  - Delirium [None]
  - Confusional state [None]
  - Affect lability [None]
  - Hallucination [None]
